FAERS Safety Report 13099462 (Version 1)
Quarter: 2017Q1

REPORT INFORMATION
  Report Type: Spontaneous
  Country: BR (occurrence: BR)
  Receive Date: 20170109
  Receipt Date: 20170109
  Transmission Date: 20170428
  Serious: Yes (Hospitalization)
  Sender: FDA-Public Use
  Company Number: BR-AMGEN-BRASP2017002504

PATIENT
  Age: 13 Year
  Sex: Male

DRUGS (1)
  1. ENBREL [Suspect]
     Active Substance: ETANERCEPT
     Indication: PRODUCT USED FOR UNKNOWN INDICATION
     Dosage: 0.7 MG, WEEKLY
     Route: 065
     Dates: start: 201611

REACTIONS (4)
  - Abasia [Unknown]
  - Product use issue [Unknown]
  - Decreased immune responsiveness [Unknown]
  - Movement disorder [Unknown]

NARRATIVE: CASE EVENT DATE: 2016
